FAERS Safety Report 9733111 (Version 2)
Quarter: 2015Q2

REPORT INFORMATION
  Report Type: Spontaneous
  Country: US (occurrence: US)
  Receive Date: 20131205
  Receipt Date: 20150518
  Transmission Date: 20150821
  Serious: Yes (Hospitalization)
  Sender: FDA-Public Use
  Company Number: PHHY2013US135669

PATIENT
  Age: 60 Year
  Sex: Female

DRUGS (4)
  1. WARFARIN [Concomitant]
     Active Substance: WARFARIN
     Indication: PULMONARY EMBOLISM
     Route: 065
  2. PREDNISONE. [Concomitant]
     Active Substance: PREDNISONE
     Indication: PRODUCT USED FOR UNKNOWN INDICATION
     Route: 065
  3. FONDAPARINUX [Concomitant]
     Active Substance: FONDAPARINUX
     Indication: PRODUCT USED FOR UNKNOWN INDICATION
     Route: 065
  4. HEPARIN [Suspect]
     Active Substance: HEPARIN SODIUM
     Indication: PULMONARY EMBOLISM
     Route: 042

REACTIONS (11)
  - Skin discolouration [Unknown]
  - Thrombocytopenia [Recovered/Resolved]
  - Vena cava thrombosis [Unknown]
  - Gangrene [Unknown]
  - Pain in extremity [Unknown]
  - Heparin-induced thrombocytopenia [Recovering/Resolving]
  - Pelvic venous thrombosis [Unknown]
  - Acute kidney injury [Unknown]
  - Device occlusion [Unknown]
  - Platelet count decreased [Recovered/Resolved]
  - Deep vein thrombosis [Unknown]
